FAERS Safety Report 8510817-X (Version None)
Quarter: 2012Q3

REPORT INFORMATION
  Report Type: 
  Country: None (occurrence: None)
  Receive Date: 20120709
  Receipt Date: 20120709
  Transmission Date: 20120928
  Serious: No
  Sender: FDA-Public Use
  Company Number: None

PATIENT
  Sex: Female

DRUGS (1)
  1. ZELBORAF [Suspect]
     Indication: MALIGNANT MELANOMA
     Dosage: 4 TABLETS PO
     Route: 048
     Dates: start: 20120301

REACTIONS (2)
  - GINGIVAL BLEEDING [None]
  - CONDITION AGGRAVATED [None]
